FAERS Safety Report 11225694 (Version 1)
Quarter: 2015Q2

REPORT INFORMATION
  Report Type: Spontaneous
  Country: US (occurrence: US)
  Receive Date: 20150629
  Receipt Date: 20150629
  Transmission Date: 20150821
  Serious: No
  Sender: FDA-Public Use
  Company Number: US-BAUSCH-BL-2015-010219

PATIENT
  Age: 57 Year
  Sex: Female

DRUGS (1)
  1. SOLODYN [Suspect]
     Active Substance: MINOCYCLINE HYDROCHLORIDE
     Indication: ACNE
     Dates: start: 20150318

REACTIONS (4)
  - Dry skin [Unknown]
  - Drug ineffective [Unknown]
  - Skin exfoliation [Unknown]
  - Rash macular [Unknown]

NARRATIVE: CASE EVENT DATE: 2015
